FAERS Safety Report 17440309 (Version 1)
Quarter: 2020Q1

REPORT INFORMATION
  Report Type: Spontaneous
  Country: US (occurrence: US)
  Receive Date: 20200220
  Receipt Date: 20200220
  Transmission Date: 20200409
  Serious: No
  Sender: FDA-Public Use
  Company Number: US-JNJFOC-20200226074

PATIENT
  Sex: Male

DRUGS (1)
  1. TOPAMAX [Suspect]
     Active Substance: TOPIRAMATE
     Indication: PRODUCT USED FOR UNKNOWN INDICATION
     Dosage: 2 X 100 MG
     Route: 048

REACTIONS (3)
  - Vertigo [Unknown]
  - Therapy cessation [Unknown]
  - Migraine [Unknown]
